FAERS Safety Report 23520645 (Version 1)
Quarter: 2024Q1

REPORT INFORMATION
  Report Type: Spontaneous
  Country: NL (occurrence: NL)
  Receive Date: 20240214
  Receipt Date: 20240214
  Transmission Date: 20240409
  Serious: Yes (Life-Threatening, Hospitalization)
  Sender: FDA-Public Use
  Company Number: None

PATIENT
  Age: 75 Year
  Sex: Male

DRUGS (7)
  1. EZETIMIBE [Suspect]
     Active Substance: EZETIMIBE
     Indication: Dyslipidaemia
     Dosage: / BRAND NAME NOT SPECIFIED,1 PIECE ONCE A DAY,
     Route: 065
     Dates: start: 20220501, end: 20220814
  2. ISOSORBIDE MONONITRATE [Concomitant]
     Active Substance: ISOSORBIDE MONONITRATE
     Dosage: ISOSORBIDE MONONITRATE TABLET MGA 30MG / BRAND NAME NOT SPECIFIED
     Route: 065
  3. CHOLECALCIFEROL [Concomitant]
     Active Substance: CHOLECALCIFEROL
     Dosage: 5600 UNITS, E   5600IE / BRAND NAME NOT SPECIFIED
  4. METOPROLOL TARTRATE [Concomitant]
     Active Substance: METOPROLOL TARTRATE
     Dosage: METOPROLOL TABLET MGA 50MG (SUCCINATE) / SELOKEEN ZOC 50 TABLET MGA 47.5MG
     Route: 065
  5. ASPIRIN [Concomitant]
     Active Substance: ASPIRIN
     Dosage: / BRAND NAME NOT SPECIFIED
     Route: 065
  6. ESOMEPRAZOLE [Concomitant]
     Active Substance: ESOMEPRAZOLE
     Dosage: GASTRO-RESISTANT CAPSULE,  ESOMEPRAZOL CAPSULE MSR 40MG / BRAND NAME NOT SPECIFIED
  7. AMLODIPINE [Concomitant]
     Active Substance: AMLODIPINE BESYLATE
     Dosage: / BRAND NAME NOT SPECIFIED
     Route: 065

REACTIONS (2)
  - Diarrhoea [Recovering/Resolving]
  - Weight decreased [Recovering/Resolving]
